FAERS Safety Report 8516584-8 (Version None)
Quarter: 2012Q3

REPORT INFORMATION
  Report Type: 
  Country: None (occurrence: None)
  Receive Date: 20120711
  Receipt Date: 20120711
  Transmission Date: 20120928
  Serious: Yes (Other)
  Sender: FDA-Public Use
  Company Number: None

PATIENT
  Age: 52 Year
  Sex: Female

DRUGS (2)
  1. PROMETHAZINE [Suspect]
     Indication: VOMITING
     Dosage: 25MG ONCE DAILY PO ABOUT 8 MONTHS AGO
     Route: 048
     Dates: start: 20120117, end: 20120709
  2. PRILOSEC [Suspect]
     Indication: VOMITING
     Dosage: 20MG ONCE DAILY PO ABOUT 8 MONTHS AGO
     Route: 048
     Dates: start: 20120117, end: 20120709

REACTIONS (3)
  - VOMITING [None]
  - NAUSEA [None]
  - WEIGHT DECREASED [None]
